FAERS Safety Report 20267692 (Version 4)
Quarter: 2022Q1

REPORT INFORMATION
  Report Type: Report from Study
  Country: US (occurrence: US)
  Receive Date: 20211231
  Receipt Date: 20220107
  Transmission Date: 20220423
  Serious: Yes (Life-Threatening, Hospitalization, Disabling, Other)
  Sender: FDA-Public Use
  Company Number: US-CELGENE-USA-20211209409

PATIENT
  Age: 38 Year
  Sex: Female

DRUGS (4)
  1. ZEPOSIA [Suspect]
     Active Substance: OZANIMOD HYDROCHLORIDE
     Indication: Multiple sclerosis
     Dosage: .92 MILLIGRAM
     Route: 048
     Dates: start: 20210608, end: 20220104
  2. LEVONEX [Concomitant]
     Indication: Antiviral treatment
     Route: 058
  3. LEVONEX [Concomitant]
     Indication: Antibiotic therapy
  4. LEVONEX [Concomitant]
     Indication: Antifungal treatment

REACTIONS (4)
  - Thrombosis [Unknown]
  - Bone marrow failure [Not Recovered/Not Resolved]
  - Cerebral haemorrhage [Unknown]
  - Fall [Unknown]

NARRATIVE: CASE EVENT DATE: 20211210
